FAERS Safety Report 8428621-X (Version None)
Quarter: 2012Q2

REPORT INFORMATION
  Report Type: 
  Country: None (occurrence: None)
  Receive Date: 20120606
  Receipt Date: 20120524
  Transmission Date: 20120825
  Serious: Yes (Other)
  Sender: FDA-Public Use
  Company Number: 1205-275

PATIENT
  Age: 88 Year
  Sex: Male

DRUGS (1)
  1. EYLEA [Suspect]
     Dosage: INTRAVITREAL
     Dates: start: 20120217, end: 20120426

REACTIONS (1)
  - RETINAL OEDEMA [None]
